FAERS Safety Report 15515512 (Version 3)
Quarter: 2018Q4

REPORT INFORMATION
  Report Type: Report from Study
  Country: US (occurrence: US)
  Receive Date: 20181017
  Receipt Date: 20181206
  Transmission Date: 20190205
  Serious: Yes (Hospitalization)
  Sender: FDA-Public Use
  Company Number: PHEH2018US043615

PATIENT
  Sex: Female
  Weight: 81.63 kg

DRUGS (2)
  1. COSENTYX [Suspect]
     Active Substance: SECUKINUMAB
     Indication: PSORIATIC ARTHROPATHY
  2. COSENTYX [Suspect]
     Active Substance: SECUKINUMAB
     Indication: PSORIASIS
     Dosage: 300 MG, QMO (INJECT 300MG (2 PENS) SUBCUTANEOUSLY AT DAY 28 (DOSE 5) THEN EVERY 4 WEEKS)
     Route: 058
     Dates: start: 20180830

REACTIONS (3)
  - Oesophageal obstruction [Unknown]
  - Fungal infection [Unknown]
  - Dysphagia [Unknown]
